FAERS Safety Report 5527017-8 (Version None)
Quarter: 2007Q4

REPORT INFORMATION
  Report Type: 
  Country: None (occurrence: None)
  Receive Date: 20071127
  Receipt Date: 20071115
  Transmission Date: 20080405
  Serious: Yes (Other)
  Sender: FDA-Public Use
  Company Number: JP-PFIZER INC-2007097590

PATIENT
  Sex: Male

DRUGS (1)
  1. SOMAVERT [Suspect]
     Indication: ACROMEGALY
     Dosage: DAILY DOSE:40MG
     Route: 058
     Dates: start: 20071108, end: 20071101

REACTIONS (3)
  - ERYTHEMA [None]
  - GENERALISED ERYTHEMA [None]
  - PRURITUS [None]
